FAERS Safety Report 24410632 (Version 2)
Quarter: 2025Q1

REPORT INFORMATION
  Report Type: Spontaneous
  Country: US (occurrence: US)
  Receive Date: 20241008
  Receipt Date: 20250224
  Transmission Date: 20250409
  Serious: Yes (Hospitalization, Other)
  Sender: ELI LILLY AND COMPANY
  Company Number: US-ELI_LILLY_AND_COMPANY-US202410004887

PATIENT
  Age: 51 Year
  Sex: Male

DRUGS (9)
  1. TRULICITY [Suspect]
     Active Substance: DULAGLUTIDE
     Indication: Type 2 diabetes mellitus
     Dosage: UNK UNK, UNKNOWN
     Route: 065
     Dates: start: 20230410, end: 20231201
  2. METFORMIN [Concomitant]
     Active Substance: METFORMIN HYDROCHLORIDE
     Indication: Type 2 diabetes mellitus
  3. SILDENAFIL [Concomitant]
     Active Substance: SILDENAFIL
     Indication: Erectile dysfunction
     Dates: start: 20221010, end: 20230823
  4. ALPRAZOLAM [Concomitant]
     Active Substance: ALPRAZOLAM
     Indication: Anxiety
     Dates: start: 20230906
  5. ELIQUIS [Concomitant]
     Active Substance: APIXABAN
     Indication: Anticoagulant therapy
     Dates: start: 20230103
  6. FLECAINIDE [Concomitant]
     Active Substance: FLECAINIDE
     Indication: Arrhythmia
     Dates: start: 20230111
  7. LISINOPRIL [Concomitant]
     Active Substance: LISINOPRIL
     Indication: Blood pressure measurement
     Dates: start: 20230202
  8. OMEPRAZOLE [Concomitant]
     Active Substance: OMEPRAZOLE
     Indication: Gastrooesophageal reflux disease
     Dates: start: 20230909
  9. ATENOLOL [Concomitant]
     Active Substance: ATENOLOL
     Indication: Blood pressure measurement
     Dates: start: 20220908

REACTIONS (8)
  - Impaired gastric emptying [Not Recovered/Not Resolved]
  - Nausea [Not Recovered/Not Resolved]
  - Vomiting [Not Recovered/Not Resolved]
  - Constipation [Unknown]
  - Diarrhoea [Not Recovered/Not Resolved]
  - Decreased appetite [Not Recovered/Not Resolved]
  - Abdominal pain upper [Not Recovered/Not Resolved]
  - Depression [Unknown]

NARRATIVE: CASE EVENT DATE: 20230428
